FAERS Safety Report 7960038-4 (Version None)
Quarter: 2011Q4

REPORT INFORMATION
  Report Type: 
  Country: None (occurrence: None)
  Receive Date: 20111206
  Receipt Date: 20111122
  Transmission Date: 20120403
  Serious: Yes (Hospitalization, Other)
  Sender: FDA-Public Use
  Company Number: PHHY2011FR102920

PATIENT
  Sex: Female
  Weight: 67 kg

DRUGS (28)
  1. MABTHERA [Suspect]
     Dosage: 620 MG, UNK
     Dates: start: 20110623, end: 20110625
  2. DEXAMETHASONE [Suspect]
     Dosage: 60 MG, UNK
     Dates: start: 20110407
  3. REPAGLINIDE [Concomitant]
     Dosage: UNK
     Dates: start: 20110523
  4. DEXAMETHASONE [Suspect]
     Dosage: 60 MG, UNK
     Dates: start: 20110503
  5. MABTHERA [Suspect]
     Dosage: 700 MG, UNK
     Dates: start: 20110407
  6. CARBOPLATIN [Suspect]
     Dosage: 400 MG, UNK
     Dates: start: 20110503
  7. DEXAMETHASONE [Suspect]
     Dosage: 120 MG, UNK
     Dates: start: 20110623, end: 20110625
  8. DEXAMETHASONE [Suspect]
     Dosage: 120 MG, UNK
     Dates: start: 20110718, end: 20110720
  9. GLUCOPHAGE [Concomitant]
     Dosage: UNK UKN, UNK
     Dates: start: 20080101, end: 20110516
  10. MABTHERA [Suspect]
     Dosage: UNK UKN, UNK
     Dates: start: 20090101
  11. MABTHERA [Suspect]
     Dosage: 620 MG, UNK
     Dates: start: 20110718, end: 20110720
  12. CARBOPLATIN [Suspect]
     Dosage: 250 MG, UNK
     Dates: start: 20110718, end: 20110720
  13. CYTARABINE [Suspect]
     Dosage: 3000 MG, UNK
     Dates: start: 20110407
  14. GLUCOPHAGE [Concomitant]
     Dosage: UNK
     Dates: start: 20110518
  15. FEMARA [Suspect]
     Dosage: UNK
     Dates: end: 20110501
  16. CYTARABINE [Suspect]
     Dosage: 3000 MG, UNK
     Dates: start: 20110503
  17. CYTARABINE [Suspect]
     Dosage: 2200 MG, UNK
     Dates: start: 20110718, end: 20110720
  18. LEVOTHYROXINE SODIUM [Concomitant]
     Dosage: UNK UKN, UNK
     Dates: start: 19970101
  19. CARBOPLATIN [Suspect]
     Dosage: 400 MG, UNK
     Dates: start: 20110407
  20. CARBOPLATIN [Suspect]
     Dosage: 240 MG, UNK
     Dates: start: 20110623, end: 20110624
  21. CYTARABINE [Suspect]
     Dosage: 2400 MG, UNK
     Dates: start: 20110623, end: 20110625
  22. CYTARABINE [Suspect]
     Dosage: 2200 MG, UNK
  23. MABTHERA [Suspect]
     Dosage: 700 MG, UNK
     Dates: start: 20110503
  24. CARBOPLATIN [Suspect]
     Dosage: 250 MG, UNK
  25. DEXAMETHASONE [Suspect]
     Dosage: 120 MG, UNK
  26. COZAAR [Concomitant]
     Dosage: UNK UKN, UNK
     Dates: start: 20080101
  27. REPAGLINIDE [Concomitant]
     Dosage: UNK
     Dates: end: 20110516
  28. MABTHERA [Suspect]
     Dosage: 620 MG, UNK

REACTIONS (13)
  - SOMNOLENCE [None]
  - TREMOR [None]
  - HYPOMAGNESAEMIA [None]
  - RASH ERYTHEMATOUS [None]
  - HYPOKALAEMIA [None]
  - DECREASED APPETITE [None]
  - ASTHENIA [None]
  - OEDEMA PERIPHERAL [None]
  - HYPOGLYCAEMIA [None]
  - PANCYTOPENIA [None]
  - PURPURA [None]
  - WEIGHT DECREASED [None]
  - HYPOCALCAEMIA [None]
